FAERS Safety Report 25109073 (Version 1)
Quarter: 2025Q1

REPORT INFORMATION
  Report Type: Spontaneous
  Country: FR (occurrence: FR)
  Receive Date: 20250322
  Receipt Date: 20250322
  Transmission Date: 20250408
  Serious: Yes (Other)
  Sender: TEVA
  Company Number: None

PATIENT
  Age: 30 Year
  Sex: Female

DRUGS (4)
  1. VENLAFAXINE [Suspect]
     Active Substance: VENLAFAXINE HYDROCHLORIDE
     Indication: Depression
     Dosage: 75MGX2/DAY
     Route: 048
     Dates: start: 202407, end: 20250212
  2. GABAPENTIN [Suspect]
     Active Substance: GABAPENTIN
     Indication: Pelvic pain
     Dosage: 900MG/DAY
     Route: 048
     Dates: start: 202407, end: 20250212
  3. EBASTINE [Concomitant]
     Active Substance: EBASTINE
     Indication: Product used for unknown indication
     Route: 048
     Dates: start: 202407, end: 20250212
  4. PREGABALIN [Suspect]
     Active Substance: PREGABALIN
     Indication: Pelvic pain
     Dosage: 200MG/DAY
     Route: 048
     Dates: start: 202407, end: 20250212

REACTIONS (5)
  - Vomiting [Recovered/Resolved]
  - Headache [Recovered/Resolved]
  - Hyperhidrosis [Recovered/Resolved]
  - Withdrawal syndrome [Not Recovered/Not Resolved]
  - Diarrhoea [Recovered/Resolved]

NARRATIVE: CASE EVENT DATE: 20250214
